FAERS Safety Report 21498671 (Version 2)
Quarter: 2022Q4

REPORT INFORMATION
  Report Type: Spontaneous
  Country: DE (occurrence: DE)
  Receive Date: 20221024
  Receipt Date: 20221104
  Transmission Date: 20230113
  Serious: Yes (Life-Threatening, Other)
  Sender: FDA-Public Use
  Company Number: None

PATIENT
  Sex: Female

DRUGS (1)
  1. METOPROLOL [Suspect]
     Active Substance: METOPROLOL
     Indication: Product used for unknown indication
     Dosage: UNK (EINNHAME DIESER CHARGE SEIT 20.09.22, EINNHAME VON METOPROLOL RET.SEIT 20 JAHREN)
     Route: 065
     Dates: start: 20220920, end: 20221005

REACTIONS (7)
  - Cold sweat [Unknown]
  - Chills [Unknown]
  - Mydriasis [Unknown]
  - Tremor [Unknown]
  - Dizziness [Unknown]
  - Arrhythmia [Unknown]
  - Product quality issue [Unknown]

NARRATIVE: CASE EVENT DATE: 20220901
